FAERS Safety Report 24823680 (Version 1)
Quarter: 2025Q1

REPORT INFORMATION
  Report Type: Spontaneous
  Country: FR (occurrence: FR)
  Receive Date: 20250109
  Receipt Date: 20250109
  Transmission Date: 20250408
  Serious: Yes (Hospitalization)
  Sender: TEVA
  Company Number: None

PATIENT
  Age: 78 Year
  Sex: Female
  Weight: 60 kg

DRUGS (2)
  1. CARBOPLATIN [Suspect]
     Active Substance: CARBOPLATIN
     Indication: Clear cell endometrial carcinoma
     Dosage: 4 COURSES OF CARBOPLATIN WITH C1 ON 09/21/23 AND C4 ON 11/22/23.?THEN 3 COURSES OF CARBOPLATIN 34...
     Route: 042
     Dates: start: 20240912, end: 20241024
  2. JEMPERLI [Suspect]
     Active Substance: DOSTARLIMAB-GXLY
     Indication: Clear cell endometrial carcinoma
     Dosage: 3 COURSES OF DOSTARLIMAB AAP 500 MG WITH C1 ON 09/12/24, C2 ON 10/03/24 THEN C3 ON 10/24/24. C4 S...
     Route: 042
     Dates: start: 20240912, end: 20241024

REACTIONS (1)
  - Otitis media acute [Recovering/Resolving]

NARRATIVE: CASE EVENT DATE: 20241111
